FAERS Safety Report 5071683-0 (Version None)
Quarter: 2006Q3

REPORT INFORMATION
  Report Type: 
  Country: None (occurrence: None)
  Receive Date: 20060801
  Receipt Date: 20060720
  Transmission Date: 20061208
  Serious: Yes (Hospitalization)
  Sender: FDA-Public Use
  Company Number: GXKR2006DK03961

PATIENT
  Age: 74 Year
  Sex: Male

DRUGS (8)
  1. METFORMIN HCL [Suspect]
     Indication: DIABETES MELLITUS NON-INSULIN-DEPENDENT
     Dosage: 500 MG, TID
  2. RADIOACTIVE IODINE SOLUTIO0N (SODIUM IDOIDE (1311)) [Suspect]
     Dosage: INTRAVENOUS
     Route: 042
  3. DIGOXIN [Concomitant]
  4. METOPROLOL (METOPROLOL) [Concomitant]
  5. WARFARIN SODIUM [Concomitant]
  6. FUROSEMIDE [Concomitant]
  7. SPIRONOLACTONE [Concomitant]
  8. ALLOPURINOL [Concomitant]

REACTIONS (12)
  - ANURIA [None]
  - AZOTAEMIA [None]
  - BLOOD POTASSIUM INCREASED [None]
  - DYSPNOEA [None]
  - HAEMODIALYSIS [None]
  - INTERNATIONAL NORMALISED RATIO INCREASED [None]
  - METABOLIC ACIDOSIS [None]
  - NAUSEA [None]
  - NEPHROPATHY [None]
  - POST PROCEDURAL COMPLICATION [None]
  - RENAL IMPAIRMENT [None]
  - VOMITING [None]
